FAERS Safety Report 23703239 (Version 1)
Quarter: 2024Q2

REPORT INFORMATION
  Report Type: Spontaneous
  Country: AU (occurrence: AU)
  Receive Date: 20240403
  Receipt Date: 20240403
  Transmission Date: 20240715
  Serious: Yes (Other)
  Sender: FDA-Public Use
  Company Number: AU-AUS-SPO/AUS/24/0005178

PATIENT
  Sex: Male

DRUGS (1)
  1. ONDANSETRON [Suspect]
     Active Substance: ONDANSETRON
     Indication: Product used for unknown indication

REACTIONS (4)
  - Loss of consciousness [Unknown]
  - Malaise [Unknown]
  - Product packaging difficult to open [Unknown]
  - Product physical issue [Unknown]
